FAERS Safety Report 7332234-0 (Version None)
Quarter: 2011Q1

REPORT INFORMATION
  Report Type: 
  Country: None (occurrence: None)
  Receive Date: 20110304
  Receipt Date: 20110224
  Transmission Date: 20110831
  Serious: Yes (Hospitalization)
  Sender: FDA-Public Use
  Company Number: TR-JNJFOC-20110208667

PATIENT
  Sex: Male
  Weight: 75 kg

DRUGS (2)
  1. ISONIAZID [Concomitant]
     Indication: ANKYLOSING SPONDYLITIS
  2. REMICADE [Suspect]
     Indication: ANKYLOSING SPONDYLITIS
     Route: 042

REACTIONS (3)
  - BLOOD BILIRUBIN INCREASED [None]
  - JAUNDICE [None]
  - HEPATIC ENZYME INCREASED [None]
